FAERS Safety Report 7786215-3 (Version None)
Quarter: 2011Q3

REPORT INFORMATION
  Report Type: 
  Country: None (occurrence: None)
  Receive Date: 20110929
  Receipt Date: 20110921
  Transmission Date: 20111222
  Serious: Yes (Hospitalization)
  Sender: FDA-Public Use
  Company Number: US-AMGEN-USASP2011040639

PATIENT
  Age: 63 Year
  Sex: Female
  Weight: 130 kg

DRUGS (13)
  1. HYDROCHLOROTHIAZIDE [Concomitant]
     Dosage: 25 MG, UNK
  2. ADVAIR DISKUS 100/50 [Concomitant]
     Dosage: UNK
     Route: 055
  3. TRAMADOL HCL [Concomitant]
     Dosage: 100 MG, Q8H
  4. PREMARIN [Concomitant]
     Dosage: 0.625 MG, UNK
     Route: 048
  5. NEUPOGEN [Suspect]
     Indication: PRODUCT USED FOR UNKNOWN INDICATION
  6. LIPITOR [Concomitant]
     Dosage: 20 MG, QD
  7. AMLODIPINE BESYLATE [Concomitant]
     Dosage: 10 MG, QD
  8. POTASSIUM 99 [Concomitant]
     Dosage: 99 MG, UNK
     Route: 048
  9. PROCRIT [Suspect]
     Indication: RENAL FAILURE CHRONIC
     Dosage: 10000 IU, UNK
     Route: 058
     Dates: start: 20110805
  10. OMEPRAZOLE [Concomitant]
     Dosage: 20 MG, QD
     Route: 048
  11. VENTOLIN HFA [Concomitant]
     Dosage: 90 MG, BID
     Route: 055
  12. PROPOFOL [Concomitant]
     Indication: SEDATION
  13. PROVERA [Concomitant]
     Dosage: 10 MG, QD
     Route: 048

REACTIONS (5)
  - ANGIOEDEMA [None]
  - RESPIRATORY DISTRESS [None]
  - ANGER [None]
  - HYPERTENSION [None]
  - RESPIRATORY FAILURE [None]
